FAERS Safety Report 6170747-8 (Version None)
Quarter: 2009Q2

REPORT INFORMATION
  Report Type: 
  Country: None (occurrence: None)
  Receive Date: 20090427
  Receipt Date: 20090421
  Transmission Date: 20091009
  Serious: Yes (Hospitalization)
  Sender: FDA-Public Use
  Company Number: FACT0900032

PATIENT
  Age: 67 Year
  Sex: Female

DRUGS (1)
  1. FACTIVE [Suspect]
     Indication: NASAL CONGESTION
     Dosage: 320 MG, SINGLE

REACTIONS (2)
  - ENCEPHALOPATHY [None]
  - SELF-MEDICATION [None]
